FAERS Safety Report 26174005 (Version 1)
Quarter: 2025Q4

REPORT INFORMATION
  Report Type: Spontaneous
  Country: US (occurrence: US)
  Receive Date: 20251218
  Receipt Date: 20251218
  Transmission Date: 20260118
  Serious: Yes (Hospitalization, Other)
  Sender: STRIDES
  Company Number: US-STRIDES ARCOLAB LIMITED-2025SP015706

PATIENT
  Age: 63 Year
  Sex: Female

DRUGS (7)
  1. HYDROCORTISONE [Interacting]
     Active Substance: HYDROCORTISONE
     Indication: Hormone replacement therapy
     Dosage: UNK
     Route: 048
  2. HYDROCORTISONE [Interacting]
     Active Substance: HYDROCORTISONE
     Dosage: DOUBLE DOSE OVER THE PRECEDING TWO WEEKS
     Route: 048
  3. TIRZEPATIDE [Interacting]
     Active Substance: TIRZEPATIDE
     Indication: Type 2 diabetes mellitus
     Route: 065
  4. TIRZEPATIDE [Interacting]
     Active Substance: TIRZEPATIDE
     Route: 065
  5. FLUDROCORTISONE [Concomitant]
     Active Substance: FLUDROCORTISONE
     Indication: Adrenal insufficiency
     Dosage: UNK
     Route: 065
  6. HYDROCORTISONE [Concomitant]
     Active Substance: HYDROCORTISONE
     Indication: Hormone replacement therapy
     Dosage: UNK
     Route: 042
  7. HYDROCORTISONE [Concomitant]
     Active Substance: HYDROCORTISONE
     Dosage: UNK
     Route: 030

REACTIONS (3)
  - Adrenal insufficiency [Unknown]
  - Drug interaction [Unknown]
  - Malabsorption [Unknown]
